FAERS Safety Report 5525829-8 (Version None)
Quarter: 2007Q4

REPORT INFORMATION
  Report Type: 
  Country: None (occurrence: None)
  Receive Date: 20071126
  Receipt Date: 20071116
  Transmission Date: 20080405
  Serious: Yes (Life-Threatening)
  Sender: FDA-Public Use
  Company Number: PHFR2007GB03360

PATIENT
  Age: 67 Year
  Sex: Male
  Weight: 70 kg

DRUGS (8)
  1. ACETYLSALICYLIC ACID SRT [Suspect]
     Indication: MYOCARDIAL INFARCTION
     Dosage: 75 MG, QD
     Route: 065
  2. CITALOPRAM (NGX) [Suspect]
     Indication: DEPRESSION
     Dosage: 40 MG, QD
     Route: 065
  3. AMLODIPINE [Concomitant]
     Indication: MYOCARDIAL INFARCTION
     Dosage: 5 MG, QD
     Route: 048
  4. ATORVASTATIN CALCIUM [Concomitant]
     Indication: MYOCARDIAL INFARCTION
     Dosage: 10 MG, QD
     Route: 048
  5. ISOSORBIDE MONONITRATE [Concomitant]
     Indication: MYOCARDIAL INFARCTION
     Dosage: 30 MG, QD
     Route: 048
  6. QVAR 40 [Concomitant]
     Indication: ASTHMA
     Dosage: UNK, BID
  7. ALBUTEROL [Concomitant]
     Indication: ASTHMA
     Dosage: UNK, BID
  8. DICLOFENAC SODIUM [Suspect]
     Indication: PAIN
     Dosage: 75 MG, BID
     Route: 065

REACTIONS (7)
  - ACUTE CORONARY SYNDROME [None]
  - CONDITION AGGRAVATED [None]
  - GASTROINTESTINAL HAEMORRHAGE [None]
  - HAEMOGLOBIN DECREASED [None]
  - MELAENA [None]
  - MYOCARDIAL ISCHAEMIA [None]
  - TROPONIN INCREASED [None]
